FAERS Safety Report 10784852 (Version 1)
Quarter: 2015Q1

REPORT INFORMATION
  Report Type: Spontaneous
  Country: US (occurrence: US)
  Receive Date: 20150211
  Receipt Date: 20150211
  Transmission Date: 20150721
  Serious: No
  Sender: FDA-Public Use
  Company Number: US-GLAXOSMITHKLINE-A1023995A

PATIENT

DRUGS (14)
  1. VITAMIN D [Concomitant]
     Active Substance: CHOLECALCIFEROL
  2. ALENDRONATE [Concomitant]
     Active Substance: ALENDRONATE SODIUM
  3. CALCIUM [Concomitant]
     Active Substance: CALCIUM
  4. KLONOPIN [Concomitant]
     Active Substance: CLONAZEPAM
  5. MULTIVITAMIN [Concomitant]
     Active Substance: VITAMINS
  6. ASPIRIN. [Concomitant]
     Active Substance: ASPIRIN
  7. GINGER ROOT [Concomitant]
  8. VITAMIN B COMPLEX [Concomitant]
     Active Substance: CYANOCOBALAMIN\DEXPANTHENOL\NIACINAMIDE\PYRIDOXINE HYDROCHLORIDE\RIBOFLAVIN 5^-PHOSPHATE SODIUM\THIAMINE HYDROCHLORIDE\VITAMIN B COMPLEX
  9. FLOVENT [Suspect]
     Active Substance: FLUTICASONE PROPIONATE
     Indication: GASTROOESOPHAGEAL REFLUX DISEASE
     Dosage: ROTA 100MCG
     Route: 055
     Dates: start: 20130501, end: 20130515
  10. FISH OIL [Concomitant]
     Active Substance: FISH OIL
  11. SEROQUEL [Concomitant]
     Active Substance: QUETIAPINE FUMARATE
  12. PRAVASTATIN [Concomitant]
     Active Substance: PRAVASTATIN\PRAVASTATIN SODIUM
  13. LUVOX [Concomitant]
     Active Substance: FLUVOXAMINE MALEATE
  14. CHONDROITIN SULFATE (BOVINE)\DIMETHYL SULFONE\GLUCOSAMINE SULFATE [Concomitant]
     Active Substance: CHONDROITIN SULFATE (BOVINE)\DIMETHYL SULFONE\GLUCOSAMINE SULFATE

REACTIONS (11)
  - Eructation [Recovered/Resolved]
  - Insomnia [Unknown]
  - Vomiting [Recovered/Resolved]
  - Labelled drug-disease interaction medication error [Unknown]
  - Retching [Recovered/Resolved]
  - Diarrhoea [Recovered/Resolved]
  - Malaise [Recovered/Resolved]
  - Asthenia [Unknown]
  - Feeling abnormal [Unknown]
  - Pollakiuria [Unknown]
  - Osteoporosis [Unknown]

NARRATIVE: CASE EVENT DATE: 20130515
